FAERS Safety Report 9743171 (Version 1)
Quarter: 2013Q4

REPORT INFORMATION
  Report Type: Spontaneous
  Country: US (occurrence: US)
  Receive Date: 20131210
  Receipt Date: 20131210
  Transmission Date: 20140711
  Serious: Yes (Hospitalization)
  Sender: FDA-Public Use
  Company Number: US-GILEAD-2009-0024871

PATIENT
  Age: 84 Year
  Sex: Male

DRUGS (13)
  1. LETAIRIS [Suspect]
     Indication: PULMONARY ARTERIAL HYPERTENSION
     Route: 048
     Dates: start: 20090807, end: 20090920
  2. WARFARIN [Concomitant]
  3. HYZAAR [Concomitant]
  4. COREG [Concomitant]
  5. CARDIZEM CD [Concomitant]
  6. CARDURA [Concomitant]
  7. SPIRIVA [Concomitant]
  8. SYMBICORT [Concomitant]
  9. ZOCOR [Concomitant]
  10. SYNTHROID [Concomitant]
  11. AVANDIA [Concomitant]
  12. GLIMEPIRIDE [Concomitant]
  13. PRILOSEC [Concomitant]

REACTIONS (2)
  - Cardiac failure congestive [Recovered/Resolved]
  - Weight increased [Recovered/Resolved]
